FAERS Safety Report 11930902 (Version 4)
Quarter: 2016Q1

REPORT INFORMATION
  Report Type: Report from Study
  Country: CA (occurrence: CA)
  Receive Date: 20160120
  Receipt Date: 20160330
  Transmission Date: 20160526
  Serious: Yes (Life-Threatening)
  Sender: FDA-Public Use
  Company Number: PHHY2015CA165860

PATIENT
  Age: 59 Year
  Sex: Female

DRUGS (1)
  1. COSENTYX [Suspect]
     Active Substance: SECUKINUMAB
     Indication: PSORIASIS
     Dosage: 300 MG, QMO
     Route: 058
     Dates: start: 20151204, end: 20160317

REACTIONS (13)
  - Psoriasis [Unknown]
  - Drug administration error [Unknown]
  - Skin plaque [Unknown]
  - Injection site haemorrhage [Unknown]
  - Drug ineffective [Unknown]
  - Neck mass [Unknown]
  - Scab [Unknown]
  - Injection site bruising [Unknown]
  - Skin reaction [Unknown]
  - Madarosis [Unknown]
  - Weight decreased [Unknown]
  - Insomnia [Unknown]
  - Suicidal ideation [Unknown]

NARRATIVE: CASE EVENT DATE: 20151211
